FAERS Safety Report 10107424 (Version 3)
Quarter: 2014Q2

REPORT INFORMATION
  Report Type: Report from Study
  Country: AU (occurrence: AU)
  Receive Date: 20140424
  Receipt Date: 20140505
  Transmission Date: 20141212
  Serious: Yes (Death, Hospitalization, Other)
  Sender: FDA-Public Use
  Company Number: PHHY2014AU024951

PATIENT
  Age: 88 Year
  Sex: Female

DRUGS (4)
  1. ACLASTA [Suspect]
     Dosage: 5 MG, UNK
     Route: 042
     Dates: start: 20100204
  2. ACLASTA [Suspect]
     Dosage: 5 MG, UNK
     Route: 042
     Dates: start: 20110223
  3. ACLASTA [Suspect]
     Dosage: 5 MG, UNK
     Route: 042
     Dates: start: 20120217
  4. ACLASTA [Suspect]
     Dosage: 5 MG, UNK
     Route: 042
     Dates: start: 20130219

REACTIONS (19)
  - Asthenia [Fatal]
  - Gastrointestinal disorder [Recovering/Resolving]
  - Diarrhoea [Recovered/Resolved]
  - Vomiting [Recovered/Resolved]
  - Malaise [Recovering/Resolving]
  - Nausea [Recovering/Resolving]
  - Diarrhoea haemorrhagic [Recovering/Resolving]
  - Crepitations [Recovering/Resolving]
  - Pleural effusion [Recovering/Resolving]
  - Blood sodium decreased [Recovering/Resolving]
  - Blood bilirubin increased [Recovering/Resolving]
  - Hepatic steatosis [Recovering/Resolving]
  - Abdominal discomfort [Recovering/Resolving]
  - Dyspnoea [Recovering/Resolving]
  - Oedema peripheral [Recovering/Resolving]
  - Dehydration [Recovering/Resolving]
  - Blood pressure systolic increased [Recovering/Resolving]
  - Glomerular filtration rate decreased [Recovering/Resolving]
  - Abdominal pain lower [Recovering/Resolving]
